FAERS Safety Report 8796574 (Version 1)
Quarter: 2012Q4

REPORT INFORMATION
  Report Type: Report from Study
  Country: CA (occurrence: CA)
  Receive Date: 20120920
  Receipt Date: 20120920
  Transmission Date: 20130627
  Serious: Yes (Hospitalization)
  Sender: FDA-Public Use
  Company Number: CA-ROCHE-1125485

PATIENT
  Sex: Male
  Weight: 69.92 kg

DRUGS (3)
  1. AVASTIN [Suspect]
     Indication: GLIOBLASTOMA
     Route: 042
     Dates: start: 20111013, end: 20111111
  2. VALPROIC ACID [Concomitant]
  3. KEPPRA [Concomitant]

REACTIONS (1)
  - General physical health deterioration [Not Recovered/Not Resolved]
